FAERS Safety Report 7595979-3 (Version None)
Quarter: 2011Q3

REPORT INFORMATION
  Report Type: 
  Country: None (occurrence: None)
  Receive Date: 20110707
  Receipt Date: 20110627
  Transmission Date: 20111222
  Serious: Yes (Hospitalization)
  Sender: FDA-Public Use
  Company Number: PHHY2011ES57071

PATIENT
  Age: 39 Year
  Sex: Female

DRUGS (2)
  1. ESTRADERM [Suspect]
     Indication: IN VITRO FERTILISATION
     Dosage: 50, UNK
     Route: 062
     Dates: start: 20110523, end: 20110606
  2. ESTRADERM [Suspect]
     Dosage: 100, UNK
     Route: 062
     Dates: start: 20110523, end: 20110606

REACTIONS (3)
  - INSOMNIA [None]
  - ANXIETY [None]
  - DEPRESSION [None]
